FAERS Safety Report 18442288 (Version 2)
Quarter: 2020Q4

REPORT INFORMATION
  Report Type: Report from Study
  Country: HU (occurrence: HU)
  Receive Date: 20201029
  Receipt Date: 20201214
  Transmission Date: 20210114
  Serious: Yes (Death, Hospitalization)
  Sender: FDA-Public Use
  Company Number: HU-JNJFOC-20201030029

PATIENT
  Age: 73 Year
  Sex: Male
  Weight: 65 kg

DRUGS (15)
  1. OXYGEN. [Concomitant]
     Active Substance: OXYGEN
     Dates: end: 20201001
  2. ETHYLMORPHINE [Concomitant]
     Active Substance: ETHYLMORPHINE
  3. FUROSEMIDE. [Concomitant]
     Active Substance: FUROSEMIDE
     Dates: end: 20201001
  4. SELEXIPAG [Suspect]
     Active Substance: SELEXIPAG
     Indication: PULMONARY HYPERTENSION
     Route: 048
     Dates: start: 20200504, end: 20201001
  5. DIURETICS [Concomitant]
     Active Substance: UNSPECIFIED INGREDIENT
  6. MACITENTAN [Suspect]
     Active Substance: MACITENTAN
     Indication: PULMONARY HYPERTENSION
     Route: 048
     Dates: start: 20190918, end: 20201001
  7. MEDROL [Concomitant]
     Active Substance: METHYLPREDNISOLONE
     Dates: end: 20201001
  8. MODUXIN [Concomitant]
     Dates: end: 20201001
  9. MG                                 /07507001/ [Concomitant]
  10. DIGIMERCK [Concomitant]
     Active Substance: DIGITOXIN
     Dates: end: 20201001
  11. POTASSIUM [Concomitant]
     Active Substance: POTASSIUM
     Dates: end: 20201001
  12. VEROSPIRON [Concomitant]
     Active Substance: SPIRONOLACTONE
     Dates: end: 20201001
  13. SUMETROLIM [Concomitant]
     Active Substance: SULFAMETHOXAZOLE\TRIMETHOPRIM
     Dates: end: 20201001
  14. ASA [Concomitant]
     Active Substance: ASPIRIN
     Dates: end: 20201001
  15. METHYLPREDNISOLONE. [Concomitant]
     Active Substance: METHYLPREDNISOLONE
     Route: 042

REACTIONS (5)
  - Dyspnoea [Fatal]
  - Brain herniation [Fatal]
  - Respiratory failure [Fatal]
  - Extrasystoles [Fatal]
  - Chest pain [Fatal]

NARRATIVE: CASE EVENT DATE: 20200930
